FAERS Safety Report 16272656 (Version 5)
Quarter: 2019Q4

REPORT INFORMATION
  Report Type: Spontaneous
  Country: JP (occurrence: JP)
  Receive Date: 20190503
  Receipt Date: 20191028
  Transmission Date: 20200122
  Serious: Yes (Other)
  Sender: FDA-Public Use
  Company Number: JP-AMGEN-JPNSP2019071267

PATIENT
  Age: 82 Year
  Sex: Male
  Weight: 61 kg

DRUGS (7)
  1. MICAMLO [Concomitant]
     Active Substance: AMLODIPINE BESYLATE\TELMISARTAN
     Indication: HYPERTENSION
     Dosage: 1 TABLET, QD
     Dates: start: 20170907
  2. MYSLEE [Concomitant]
     Active Substance: ZOLPIDEM TARTRATE
     Indication: INSOMNIA
     Dosage: 5 MILLIGRAM, QD
     Dates: start: 20170801
  3. BELSOMRA [Concomitant]
     Active Substance: SUVOREXANT
     Indication: INSOMNIA
     Dosage: 15 MILLIGRAM, QD
     Dates: start: 20180201
  4. EVENITY [Suspect]
     Active Substance: ROMOSOZUMAB-AQQG
     Indication: OSTEOPOROSIS
     Dosage: 210 MILLIGRAM
     Route: 058
     Dates: start: 20190402, end: 20190402
  5. LUSEFI [Concomitant]
     Active Substance: LUSEOGLIFLOZIN
     Indication: DIABETES MELLITUS
     Dosage: 2.5 MILLIGRAM, QD
     Dates: start: 20180821
  6. PLAVIX [Concomitant]
     Active Substance: CLOPIDOGREL BISULFATE
     Indication: PERIPHERAL ARTERIAL OCCLUSIVE DISEASE
     Dosage: 75 MILLIGRAM, QD
     Dates: start: 20170907
  7. TAKEPRON [Concomitant]
     Active Substance: LANSOPRAZOLE
     Indication: GASTROOESOPHAGEAL REFLUX DISEASE
     Dosage: 15 MILLIGRAM, QD
     Dates: start: 20180821

REACTIONS (2)
  - Bladder cancer [Unknown]
  - Hydronephrosis [Unknown]

NARRATIVE: CASE EVENT DATE: 2019
